FAERS Safety Report 8401023-8 (Version None)
Quarter: 2012Q2

REPORT INFORMATION
  Report Type: 
  Country: None (occurrence: None)
  Receive Date: 20120601
  Receipt Date: 20120518
  Transmission Date: 20120825
  Serious: Yes (Hospitalization, Other)
  Sender: FDA-Public Use
  Company Number: FR-RANBAXY-2012RR-56177

PATIENT
  Age: 9 Year
  Sex: Male
  Weight: 30 kg

DRUGS (6)
  1. RISPERIDONE [Suspect]
     Indication: PSYCHOMOTOR HYPERACTIVITY
  2. METHYLPHENIDATE [Suspect]
  3. METHYLPHENIDATE [Suspect]
     Indication: AGGRESSION
     Dosage: 20 MG/DAY
     Route: 065
  4. METHYLPHENIDATE [Suspect]
     Indication: PSYCHOMOTOR HYPERACTIVITY
  5. RISPERIDONE [Suspect]
     Indication: AGGRESSION
     Dosage: 2 MG/DAY
     Route: 065
  6. METHYLPHENIDATE [Suspect]
     Dosage: 36 MG/DAY
     Route: 065

REACTIONS (3)
  - HYPERTHERMIA [None]
  - WITHDRAWAL SYNDROME [None]
  - DYSKINESIA [None]
